FAERS Safety Report 9311662 (Version 1)
Quarter: 2013Q2

REPORT INFORMATION
  Report Type: Spontaneous
  Country: GB (occurrence: GB)
  Receive Date: 20130528
  Receipt Date: 20130528
  Transmission Date: 20140414
  Serious: Yes (Other)
  Sender: FDA-Public Use
  Company Number: GB-SANOFI-AVENTIS-2013SA052565

PATIENT
  Age: 29 Year
  Sex: Female

DRUGS (1)
  1. RIFAMPICIN [Suspect]
     Indication: ANTIBIOTIC PROPHYLAXIS
     Route: 065

REACTIONS (14)
  - Porphyria acute [Recovered/Resolved]
  - Condition aggravated [Unknown]
  - Abdominal pain [Recovered/Resolved]
  - Nausea [Recovered/Resolved]
  - Vomiting [Recovered/Resolved]
  - Convulsion [Recovered/Resolved]
  - Hyponatraemia [Recovered/Resolved]
  - Urine porphobilinogen increased [Recovered/Resolved]
  - Urine delta aminolevulinate [Recovered/Resolved]
  - Ischaemic stroke [Recovering/Resolving]
  - Confusional state [Unknown]
  - Dysphagia [Unknown]
  - Quadriparesis [Recovering/Resolving]
  - Cerebral vasoconstriction [Recovering/Resolving]
